FAERS Safety Report 8026940-2 (Version None)
Quarter: 2012Q1

REPORT INFORMATION
  Report Type: 
  Country: None (occurrence: None)
  Receive Date: 20120103
  Receipt Date: 20111223
  Transmission Date: 20120608
  Serious: Yes (Death, Hospitalization)
  Sender: FDA-Public Use
  Company Number: 2010SP024529

PATIENT
  Age: 48 Year
  Sex: Male
  Weight: 65 kg

DRUGS (7)
  1. TEMOZOLOMIDE [Suspect]
     Indication: GLIOBLASTOMA MULTIFORME
     Dosage: 120 MG;PO ; 250 MG;PO ; 330 MG;PO ; 330 MG;PO; 330 MG;PO ; 330 MG;PO ; 330 MG;PO
     Route: 048
     Dates: start: 20080922, end: 20081103
  2. TEMOZOLOMIDE [Suspect]
     Indication: GLIOBLASTOMA MULTIFORME
     Dosage: 120 MG;PO ; 250 MG;PO ; 330 MG;PO ; 330 MG;PO; 330 MG;PO ; 330 MG;PO ; 330 MG;PO
     Route: 048
     Dates: start: 20081201, end: 20081205
  3. TEMOZOLOMIDE [Suspect]
     Indication: GLIOBLASTOMA MULTIFORME
     Dosage: 120 MG;PO ; 250 MG;PO ; 330 MG;PO ; 330 MG;PO; 330 MG;PO ; 330 MG;PO ; 330 MG;PO
     Route: 048
     Dates: start: 20090128, end: 20090201
  4. TEMOZOLOMIDE [Suspect]
     Indication: GLIOBLASTOMA MULTIFORME
     Dosage: 120 MG;PO ; 250 MG;PO ; 330 MG;PO ; 330 MG;PO; 330 MG;PO ; 330 MG;PO ; 330 MG;PO
     Route: 048
     Dates: start: 20081229, end: 20090102
  5. TEMOZOLOMIDE [Suspect]
     Indication: GLIOBLASTOMA MULTIFORME
     Dosage: 120 MG;PO ; 250 MG;PO ; 330 MG;PO ; 330 MG;PO; 330 MG;PO ; 330 MG;PO ; 330 MG;PO
     Route: 048
     Dates: start: 20090224, end: 20090228
  6. TEMOZOLOMIDE [Suspect]
     Indication: GLIOBLASTOMA MULTIFORME
     Dosage: 120 MG;PO ; 250 MG;PO ; 330 MG;PO ; 330 MG;PO; 330 MG;PO ; 330 MG;PO ; 330 MG;PO
     Route: 048
     Dates: start: 20090326, end: 20090330
  7. TEMOZOLOMIDE [Suspect]
     Indication: GLIOBLASTOMA MULTIFORME
     Dosage: 120 MG;PO ; 250 MG;PO ; 330 MG;PO ; 330 MG;PO; 330 MG;PO ; 330 MG;PO ; 330 MG;PO
     Route: 048
     Dates: start: 20090423, end: 20090427

REACTIONS (1)
  - PNEUMONIA [None]
